FAERS Safety Report 14105017 (Version 1)
Quarter: 2017Q4

REPORT INFORMATION
  Report Type: Spontaneous
  Country: CR (occurrence: CR)
  Receive Date: 20171018
  Receipt Date: 20171018
  Transmission Date: 20180321
  Serious: Yes (Other)
  Sender: FDA-Public Use
  Company Number: PHHY2017CR151668

PATIENT
  Age: 60 Year
  Sex: Female

DRUGS (1)
  1. PANTECTA [Suspect]
     Active Substance: PANTOPRAZOLE SODIUM
     Indication: OESOPHAGITIS
     Dosage: UNK UKN, UNK
     Route: 065

REACTIONS (2)
  - Blood calcium abnormal [Unknown]
  - Malaise [Unknown]
